FAERS Safety Report 19147092 (Version 1)
Quarter: 2021Q2

REPORT INFORMATION
  Report Type: Spontaneous
  Country: CA (occurrence: CA)
  Receive Date: 20210416
  Receipt Date: 20210416
  Transmission Date: 20210717
  Serious: Yes (Other)
  Sender: FDA-Public Use
  Company Number: CA-FRESENIUS KABI-FK202103751

PATIENT
  Age: 18 Year
  Sex: Male

DRUGS (2)
  1. GLUCOSE (MANUFACTURER UNKNOWN) [Suspect]
     Active Substance: DEXTROSE
     Indication: UNDERWEIGHT
     Dosage: UNK
     Route: 065
  2. GLYCINE MAX SEED OIL/OLEA EUROPAEA OIL [Suspect]
     Active Substance: OLIVE OIL\SOYBEAN OIL
     Indication: UNDERWEIGHT
     Dosage: UNK
     Route: 065

REACTIONS (2)
  - Cholestatic liver injury [Not Recovered/Not Resolved]
  - Acute kidney injury [Not Recovered/Not Resolved]
